FAERS Safety Report 26056082 (Version 1)
Quarter: 2025Q4

REPORT INFORMATION
  Report Type: Spontaneous
  Country: JP (occurrence: JP)
  Receive Date: 20251118
  Receipt Date: 20251118
  Transmission Date: 20260119
  Serious: Yes (Other)
  Sender: ALEXION PHARMACEUTICALS
  Company Number: JP-ASTRAZENECA-202511JPN005881JP

PATIENT
  Age: 51 Year
  Sex: Female

DRUGS (2)
  1. IMFINZI [Suspect]
     Active Substance: DURVALUMAB
     Indication: Endometrial cancer
     Dosage: UNK
  2. IMFINZI [Suspect]
     Active Substance: DURVALUMAB
     Indication: Uterine cancer

REACTIONS (1)
  - Metastases to bone [Unknown]
